FAERS Safety Report 6696907-5 (Version None)
Quarter: 2010Q2

REPORT INFORMATION
  Report Type: 
  Country: None (occurrence: None)
  Receive Date: 20100426
  Receipt Date: 20100413
  Transmission Date: 20101027
  Serious: Yes (Other)
  Sender: FDA-Public Use
  Company Number: PHHY2010US16521

PATIENT
  Sex: Female

DRUGS (1)
  1. GLEEVEC [Suspect]
     Indication: CHRONIC MYELOID LEUKAEMIA
     Dosage: 200 MG, QD
     Route: 048
     Dates: start: 20090924, end: 20100316

REACTIONS (9)
  - ASTHENIA [None]
  - BRONCHITIS [None]
  - CHRONIC MYELOID LEUKAEMIA [None]
  - CHRONIC OBSTRUCTIVE PULMONARY DISEASE [None]
  - COUGH [None]
  - HYPOTENSION [None]
  - LUNG INFECTION [None]
  - MALAISE [None]
  - RHONCHI [None]
